FAERS Safety Report 24277718 (Version 1)
Quarter: 2024Q3

REPORT INFORMATION
  Report Type: Spontaneous
  Country: JP (occurrence: JP)
  Receive Date: 20240903
  Receipt Date: 20240903
  Transmission Date: 20241017
  Serious: Yes (Other)
  Sender: BOEHRINGER INGELHEIM
  Company Number: JP-NBI-2024-BI-049001

PATIENT
  Age: 72 Year
  Sex: Female

DRUGS (1)
  1. SPEVIGO [Suspect]
     Active Substance: SPESOLIMAB-SBZO
     Indication: Generalised pustular psoriasis
     Route: 041
     Dates: start: 20240822, end: 20240822

REACTIONS (1)
  - Generalised pustular psoriasis [Unknown]

NARRATIVE: CASE EVENT DATE: 20240901
